FAERS Safety Report 9431949 (Version 2)
Quarter: 2013Q3

REPORT INFORMATION
  Report Type: Spontaneous
  Country: AT (occurrence: AT)
  Receive Date: 20130731
  Receipt Date: 20130807
  Transmission Date: 20140515
  Serious: Yes (Other)
  Sender: FDA-Public Use
  Company Number: AT-BRISTOL-MYERS SQUIBB COMPANY-19146372

PATIENT
  Age: 67 Year
  Sex: 0

DRUGS (2)
  1. METFORMIN HCL [Suspect]
     Indication: DIABETES MELLITUS
  2. LISINOPRIL [Suspect]
     Indication: HYPERTENSION

REACTIONS (1)
  - Acute myocardial infarction [Unknown]
